FAERS Safety Report 17010138 (Version 1)
Quarter: 2019Q4

REPORT INFORMATION
  Report Type: Spontaneous
  Country: CN (occurrence: CN)
  Receive Date: 20191108
  Receipt Date: 20191108
  Transmission Date: 20200122
  Serious: Yes (Other)
  Sender: FDA-Public Use
  Company Number: CN-JNJFOC-20191102584

PATIENT
  Age: 30 Year
  Sex: Male
  Weight: 75 kg

DRUGS (4)
  1. TYLENOL ER 650MG TABLET [Suspect]
     Active Substance: ACETAMINOPHEN
     Indication: PYREXIA
     Route: 048
     Dates: start: 20190825, end: 20190825
  2. SODIUM CHLORIDE. [Concomitant]
     Active Substance: SODIUM CHLORIDE
     Indication: VEHICLE SOLUTION USE
     Dosage: MANUFACTURER: ZHEJIANG CHIMIN PHARMACEUTICAL CO. LTD.
     Route: 041
     Dates: start: 20190825, end: 20190825
  3. OMEPRAZOLE SODIUM [Concomitant]
     Active Substance: OMEPRAZOLE SODIUM
     Indication: GASTROINTESTINAL DISORDER THERAPY
     Dosage: MANUFACTURER: ZHEJIANG JINHUA CONBA BIO-PHARM. CO., LTD.
     Route: 041
     Dates: start: 20190825, end: 20190825
  4. TYLENOL ER 650MG TABLET [Suspect]
     Active Substance: ACETAMINOPHEN
     Indication: HEADACHE

REACTIONS (1)
  - White blood cell count decreased [Recovering/Resolving]

NARRATIVE: CASE EVENT DATE: 20190825
